FAERS Safety Report 8607332-1 (Version None)
Quarter: 2012Q3

REPORT INFORMATION
  Report Type: 
  Country: None (occurrence: None)
  Receive Date: 20120821
  Receipt Date: 20120815
  Transmission Date: 20120928
  Serious: No
  Sender: FDA-Public Use
  Company Number: US-PFIZER INC-2012199955

PATIENT
  Age: 41 Year
  Sex: Female

DRUGS (2)
  1. SOMAVERT [Suspect]
     Indication: ACROMEGALY
     Dosage: 30 MG, 1X/DAY
     Route: 058
  2. SOMAVERT [Suspect]
     Indication: GIGANTISM

REACTIONS (1)
  - NAUSEA [None]
